FAERS Safety Report 8903917 (Version 2)
Quarter: 2012Q4

REPORT INFORMATION
  Report Type: 
  Country: US (occurrence: US)
  Receive Date: 20121112
  Receipt Date: 20121207
  Transmission Date: 20130627
  Serious: Yes (Other)
  Sender: FDA-Public Use
  Company Number: US-ASTRAZENECA-2012SE84076

PATIENT
  Age: 55 Year
  Sex: Female

DRUGS (2)
  1. CRESTOR [Suspect]
     Route: 048
  2. SIMVASTATIN [Suspect]
     Route: 065
     Dates: start: 2010

REACTIONS (3)
  - Central nervous system lesion [Unknown]
  - Blood cholesterol increased [Unknown]
  - Intentional drug misuse [Unknown]
